FAERS Safety Report 17975395 (Version 2)
Quarter: 2020Q4

REPORT INFORMATION
  Report Type: Spontaneous
  Country: BE (occurrence: BE)
  Receive Date: 20200702
  Receipt Date: 20201102
  Transmission Date: 20210113
  Serious: Yes (Other)
  Sender: FDA-Public Use
  Company Number: BE-PFIZER INC-2020249620

PATIENT
  Age: 59 Year
  Sex: Female

DRUGS (12)
  1. AVASTIN [Suspect]
     Active Substance: BEVACIZUMAB
     Indication: NEOPLASM
     Dosage: UNK
  2. MONALIZUMAB. [Suspect]
     Active Substance: MONALIZUMAB
     Indication: NEOPLASM
     Dosage: 750 MG, EVERY TWO WEEKS
     Route: 042
     Dates: start: 20191120
  3. PARACETAMOL [Concomitant]
     Active Substance: ACETAMINOPHEN
     Dosage: UNK
  4. OXALIPLATIN. [Suspect]
     Active Substance: OXALIPLATIN
     Indication: NEOPLASM
     Dosage: UNK
     Route: 042
     Dates: start: 20200324, end: 20200407
  5. FLUOROURACIL. [Suspect]
     Active Substance: FLUOROURACIL
     Indication: NEOPLASM
     Dosage: UNK
     Route: 042
     Dates: start: 20200324
  6. COVERSYL [PERINDOPRIL ERBUMINE] [Concomitant]
     Active Substance: PERINDOPRIL ERBUMINE
     Dosage: UNK
  7. DUOVENT [Concomitant]
     Active Substance: FENOTEROL HYDROBROMIDE
     Dosage: UNK
  8. IRINOTECAN HCL [Suspect]
     Active Substance: IRINOTECAN HYDROCHLORIDE
     Dosage: UNK
     Dates: start: 20200428, end: 20200519
  9. FOLINIC ACID [Suspect]
     Active Substance: LEUCOVORIN
     Indication: NEOPLASM
     Dosage: UNK
     Route: 042
     Dates: start: 20200324
  10. DURVALUMAB. [Suspect]
     Active Substance: DURVALUMAB
     Indication: NEOPLASM
     Dosage: UNK
     Route: 042
  11. CETUXIMAB. [Suspect]
     Active Substance: CETUXIMAB
     Indication: NEOPLASM
     Dosage: 500 MG/M2
     Route: 042
     Dates: start: 20191120
  12. FENOTEROL HYDROBROMIDE [Concomitant]
     Active Substance: FENOTEROL HYDROBROMIDE
     Dosage: UNK

REACTIONS (1)
  - Platelet count decreased [Recovered/Resolved]

NARRATIVE: CASE EVENT DATE: 20200325
